FAERS Safety Report 19675593 (Version 3)
Quarter: 2021Q4

REPORT INFORMATION
  Report Type: Spontaneous
  Country: GB (occurrence: GB)
  Receive Date: 20210809
  Receipt Date: 20211209
  Transmission Date: 20220303
  Serious: Yes (Congenital Anomaly, Other)
  Sender: FDA-Public Use
  Company Number: GB-HRAPH01-2021000844

PATIENT
  Sex: Male

DRUGS (1)
  1. ULIPRISTAL ACETATE [Suspect]
     Active Substance: ULIPRISTAL ACETATE
     Route: 064
     Dates: start: 20201001

REACTIONS (3)
  - Ankyloglossia congenital [Not Recovered/Not Resolved]
  - Umbilical hernia [Recovered/Resolved]
  - Maternal exposure during pregnancy [Recovered/Resolved]
